FAERS Safety Report 4661560-9 (Version None)
Quarter: 2005Q2

REPORT INFORMATION
  Report Type: 
  Country: None (occurrence: None)
  Receive Date: 20050512
  Receipt Date: 20050512
  Transmission Date: 20051028
  Serious: Yes (Life-Threatening)
  Sender: FDA-Public Use
  Company Number: None

PATIENT
  Sex: Female
  Weight: 47.6277 kg

DRUGS (1)
  1. EFFEXOR XR [Suspect]
     Dosage: 150 MG

REACTIONS (6)
  - DIZZINESS [None]
  - DRUG DOSE OMISSION [None]
  - NAUSEA [None]
  - PARAESTHESIA [None]
  - RESPIRATORY DISORDER [None]
  - SUICIDAL IDEATION [None]
